FAERS Safety Report 7055962-3 (Version None)
Quarter: 2010Q4

REPORT INFORMATION
  Report Type: 
  Country: None (occurrence: None)
  Receive Date: 20101021
  Receipt Date: 20101012
  Transmission Date: 20110411
  Serious: Yes (Hospitalization, Other)
  Sender: FDA-Public Use
  Company Number: A0871653A

PATIENT
  Age: 67 Year
  Sex: Female
  Weight: 92.7 kg

DRUGS (9)
  1. VOTRIENT [Suspect]
     Indication: PRODUCT USED FOR UNKNOWN INDICATION
     Dosage: 800MGD PER DAY
     Route: 048
     Dates: start: 20100527, end: 20100610
  2. GLUCOVANCE [Concomitant]
     Route: 048
  3. ZETIA [Concomitant]
     Dosage: 10MG PER DAY
     Route: 048
  4. LIPITOR [Concomitant]
     Dosage: 40MG PER DAY
     Route: 048
  5. LASIX [Concomitant]
     Dosage: 40MG PER DAY
     Route: 048
  6. SYNTHROID [Concomitant]
     Dosage: 50MCG PER DAY
     Route: 048
  7. ALLOPURINOL [Concomitant]
     Dosage: 100MG PER DAY
     Route: 048
  8. LISINOPRIL [Concomitant]
     Dosage: 40MG PER DAY
     Route: 048
  9. BENAZEPRIL HYDROCHLORIDE AND HYDROCHLOROTHIAZIDE [Concomitant]
     Route: 048

REACTIONS (4)
  - ASTHENIA [None]
  - BLOOD PRESSURE INCREASED [None]
  - CEREBROVASCULAR ACCIDENT [None]
  - ORAL PAIN [None]
